FAERS Safety Report 14044643 (Version 1)
Quarter: 2017Q4

REPORT INFORMATION
  Report Type: Spontaneous
  Country: FR (occurrence: FR)
  Receive Date: 20171005
  Receipt Date: 20171005
  Transmission Date: 20180321
  Serious: Yes (Other)
  Sender: FDA-Public Use
  Company Number: FR-MERCK KGAA-2028796

PATIENT
  Age: 59 Year
  Sex: Female

DRUGS (3)
  1. ZANIDIP(LERCANIDIPINE HYDROCHLORIDE)(LERCANIDIPINE HYDROCHLORIDE) [Concomitant]
  2. NOVOTHYROX [Suspect]
     Active Substance: LEVOTHYROXINE SODIUM
     Indication: THYROIDECTOMY
     Route: 048
     Dates: start: 20170701
  3. KENZEN(CANDESARTAN CILEXETIL)(CANDESARTAN CILEXETIL [Concomitant]

REACTIONS (3)
  - Dizziness [Not Recovered/Not Resolved]
  - Fatigue [Not Recovered/Not Resolved]
  - Blood thyroid stimulating hormone decreased [Not Recovered/Not Resolved]

NARRATIVE: CASE EVENT DATE: 20170820
